FAERS Safety Report 16330304 (Version 3)
Quarter: 2019Q2

REPORT INFORMATION
  Report Type: Spontaneous
  Country: US (occurrence: US)
  Receive Date: 20190520
  Receipt Date: 20190614
  Transmission Date: 20190711
  Serious: Yes (Other)
  Sender: FDA-Public Use
  Company Number: US-009507513-1905USA006980

PATIENT
  Age: 31 Year
  Sex: Female
  Weight: 97.05 kg

DRUGS (1)
  1. NEXPLANON [Suspect]
     Active Substance: ETONOGESTREL
     Indication: CONTRACEPTION
     Dosage: 1 DOSAGE FORM, EVERY 3 YEARS
     Route: 059
     Dates: start: 20160712

REACTIONS (3)
  - Complication of device removal [Not Recovered/Not Resolved]
  - Weight decreased [Unknown]
  - Device dislocation [Not Recovered/Not Resolved]

NARRATIVE: CASE EVENT DATE: 20160712
